FAERS Safety Report 5488647-5 (Version None)
Quarter: 2007Q4

REPORT INFORMATION
  Report Type: 
  Country: None (occurrence: None)
  Receive Date: 20071017
  Receipt Date: 20070424
  Transmission Date: 20080405
  Serious: No
  Sender: FDA-Public Use
  Company Number: A0643670A

PATIENT
  Age: 8 Year
  Sex: Male
  Weight: 35.5 kg

DRUGS (1)
  1. CEFTIN [Suspect]
     Indication: OTITIS MEDIA ACUTE
     Dosage: 1TSP TWICE PER DAY
     Route: 048
     Dates: start: 20070310

REACTIONS (1)
  - DRUG INEFFECTIVE [None]
